FAERS Safety Report 4721832-6 (Version None)
Quarter: 2005Q3

REPORT INFORMATION
  Report Type: 
  Country: None (occurrence: None)
  Receive Date: 20050721
  Receipt Date: 20050503
  Transmission Date: 20060218
  Serious: Yes (Other)
  Sender: FDA-Public Use
  Company Number: US-BRISTOL-MYERS SQUIBB COMPANY-12954699

PATIENT
  Age: 84 Year
  Sex: Male
  Weight: 91 kg

DRUGS (3)
  1. COUMADIN [Suspect]
     Dosage: 4MG X 5 DAYS + 2MG X 2 DAYS; STOPPED X 3 DAYS, THEN REDUCE TO 4MG X 3 DAYS + 2MG X 4 DAYS.
  2. ZOCOR [Concomitant]
  3. CENTRUM [Concomitant]

REACTIONS (1)
  - INTERNATIONAL NORMALISED RATIO INCREASED [None]
